FAERS Safety Report 7200254 (Version 4)
Quarter: 2013Q2

REPORT INFORMATION
  Report Type: Report from Study
  Country: JP (occurrence: JP)
  Receive Date: 20091204
  Receipt Date: 20130408
  Transmission Date: 20140414
  Serious: Yes (Other)
  Sender: FDA-Public Use
  Company Number: PHHY2009JP39945

PATIENT
  Age: 75 Year
  Sex: Male

DRUGS (18)
  1. AMN107 [Suspect]
     Indication: CHRONIC MYELOID LEUKAEMIA
     Dosage: 400 MG/DAY
     Route: 048
     Dates: start: 20090731, end: 20090809
  2. AMN107 [Suspect]
     Dosage: 800 MG/DAY
     Route: 048
     Dates: start: 20090810, end: 20090813
  3. AMN107 [Suspect]
     Dosage: 400 MG/DAY
     Route: 048
     Dates: start: 20090815, end: 20090817
  4. AMN107 [Suspect]
     Dosage: 800 MG/DAY
     Route: 048
     Dates: start: 20090818, end: 20091001
  5. AMN107 [Suspect]
     Dosage: 400 MG/DAY
     Dates: start: 20091029, end: 20091126
  6. AMN107 [Suspect]
     Dosage: 600 MG/DAY
     Dates: start: 20091127, end: 20100107
  7. AMN107 [Suspect]
     Dosage: 800 MG/DAY
     Dates: start: 20100108, end: 20100121
  8. AMN107 [Suspect]
     Dosage: 600 MG/DAY
     Dates: start: 20100122, end: 20100204
  9. AMN107 [Suspect]
     Dosage: 800 MG/DAY
     Dates: start: 20100205
  10. OLMETEC [Concomitant]
     Indication: RENAL IMPAIRMENT
     Dosage: 10 MG, DAILY
     Route: 048
     Dates: start: 20090714
  11. SPRYCEL [Concomitant]
     Indication: CHRONIC MYELOID LEUKAEMIA
     Dosage: 100 MG, DAILY
     Route: 048
     Dates: start: 20090617, end: 20090707
  12. CALCIUM POLYSTYRENE SULFONATE [Concomitant]
     Dosage: 50 G, DAILY
     Route: 048
     Dates: start: 20091029
  13. LASIX [Concomitant]
     Dosage: 10 MG, DAILY
     Route: 048
     Dates: start: 20090615, end: 20100317
  14. MUCOSTA [Concomitant]
     Dosage: 200 MG, DAILY
     Route: 048
     Dates: start: 20090821
  15. BONALON [Concomitant]
     Dosage: 35 MG, DAILY
     Route: 048
     Dates: start: 20100819
  16. PREDONINE [Concomitant]
     Dosage: 15 MG, DAILY
     Route: 048
     Dates: start: 20100204
  17. PREDNISOLONE [Concomitant]
     Dosage: 2 MG, UNK
     Route: 048
  18. AMLODIN [Concomitant]
     Dosage: 2.5 MG, UNK
     Route: 048
     Dates: start: 20120607

REACTIONS (6)
  - Blood phosphorus decreased [Recovered/Resolved]
  - Gynaecomastia [Recovered/Resolved]
  - Rash papular [Recovered/Resolved]
  - Pruritus [Recovered/Resolved]
  - Blood creatinine increased [Not Recovered/Not Resolved]
  - Blood potassium increased [Recovering/Resolving]
